FAERS Safety Report 6178613-9 (Version None)
Quarter: 2009Q2

REPORT INFORMATION
  Report Type: 
  Country: None (occurrence: None)
  Receive Date: 20090430
  Receipt Date: 20090423
  Transmission Date: 20091009
  Serious: Yes (Hospitalization)
  Sender: FDA-Public Use
  Company Number: 2008JP001486

PATIENT
  Age: 22 Year
  Sex: Female
  Weight: 45.5 kg

DRUGS (10)
  1. PROGRAF [Suspect]
     Indication: LUPUS NEPHRITIS
     Dosage: 3 MG, UID/QD, ORAL
     Route: 048
     Dates: start: 20080304
  2. PREDNISOLONE [Concomitant]
  3. LANSOPRAZOLE [Concomitant]
  4. ASPIRIN [Concomitant]
  5. ONEALFA (ALFACALCIDOL) [Concomitant]
  6. BONALON (ALENDRONIC ACID) [Concomitant]
  7. LOXOPROFEN (LOXOPROFEN) [Concomitant]
  8. LENDORM [Concomitant]
  9. ADALAT [Concomitant]
  10. SULFAMETHOXAZOLE AND TRIMETHOPRIM [Concomitant]

REACTIONS (1)
  - REVERSIBLE POSTERIOR LEUKOENCEPHALOPATHY SYNDROME [None]
